FAERS Safety Report 22808923 (Version 5)
Quarter: 2023Q4

REPORT INFORMATION
  Report Type: Spontaneous
  Country: US (occurrence: US)
  Receive Date: 20230810
  Receipt Date: 20231122
  Transmission Date: 20240109
  Serious: No
  Sender: FDA-Public Use
  Company Number: US-PFIZER INC-202300268988

PATIENT
  Age: 13 Year
  Sex: Female

DRUGS (2)
  1. GENOTROPIN [Suspect]
     Active Substance: SOMATROPIN
     Dosage: 1.6 MG, ALTERNATE DAY, [1.6MG ALTERNATE 1.4MG 6 DAYS A WEEK]
     Dates: start: 202307
  2. GENOTROPIN [Suspect]
     Active Substance: SOMATROPIN
     Dosage: 1.4 MG, ALTERNATE DAY, [1.6MG ALTERNATE 1.4MG 6 DAYS A WEEK]
     Dates: start: 202307

REACTIONS (2)
  - Drug dose omission by device [Unknown]
  - Device leakage [Unknown]
